FAERS Safety Report 6571248-5 (Version None)
Quarter: 2010Q1

REPORT INFORMATION
  Report Type: 
  Country: None (occurrence: None)
  Receive Date: 20100129
  Receipt Date: 20100114
  Transmission Date: 20100710
  Serious: Yes (Other)
  Sender: FDA-Public Use
  Company Number: 2010SP000187

PATIENT
  Age: 78 Year
  Sex: Male

DRUGS (3)
  1. ALVESCO [Suspect]
     Dosage: 400 UG; BID; INHALATION
     Route: 055
     Dates: start: 20090401
  2. SYMBICORT [Concomitant]
  3. SPIRIVA [Concomitant]

REACTIONS (2)
  - CATARACT OPERATION [None]
  - OPTIC ISCHAEMIC NEUROPATHY [None]
